FAERS Safety Report 14057313 (Version 3)
Quarter: 2017Q4

REPORT INFORMATION
  Report Type: Spontaneous
  Country: US (occurrence: US)
  Receive Date: 20171006
  Receipt Date: 20171018
  Transmission Date: 20180321
  Serious: Yes (Death, Other)
  Sender: FDA-Public Use
  Company Number: US-PFIZER INC-K201101077

PATIENT
  Age: 20 Year
  Sex: Male

DRUGS (1)
  1. EPIPEN [Suspect]
     Active Substance: EPINEPHRINE
     Indication: MILK ALLERGY
     Dosage: 0.3 MG, ONCE
     Route: 030
     Dates: start: 20110818

REACTIONS (6)
  - Needle issue [Fatal]
  - Product quality issue [Fatal]
  - Drug ineffective [Fatal]
  - Device use issue [Fatal]
  - Device failure [Fatal]
  - Drug dose omission [Unknown]

NARRATIVE: CASE EVENT DATE: 20110818
